FAERS Safety Report 4771519-9 (Version None)
Quarter: 2005Q3

REPORT INFORMATION
  Report Type: 
  Country: None (occurrence: None)
  Receive Date: 20050914
  Receipt Date: 20050914
  Transmission Date: 20060218
  Serious: Yes (Hospitalization)
  Sender: FDA-Public Use
  Company Number: None

PATIENT
  Sex: Female
  Weight: 88.905 kg

DRUGS (11)
  1. DEPAKOTE [Suspect]
     Indication: EPILEPSY
     Dosage: DIVALPROEX 1000 MG BID DIVALPROEX 500 MG BID
     Dates: start: 20000315, end: 20050902
  2. ASPIRIN [Concomitant]
  3. BENAZEPRIL HCL [Concomitant]
  4. HALOPERIDOL [Concomitant]
  5. LOVASTATIN [Concomitant]
  6. METFORMIN HCL [Concomitant]
  7. OLANZAPINE [Concomitant]
  8. SERTRALINE HCL [Concomitant]
  9. THIOTHIXENE [Concomitant]
  10. LEVOTHYROXINE SODIUM [Concomitant]
  11. INSULIN GLARGINE/REGULAR INSULIN [Concomitant]

REACTIONS (5)
  - ABDOMINAL PAIN [None]
  - ILEUS [None]
  - PAIN [None]
  - PANCREATITIS ACUTE [None]
  - VOMITING [None]
